FAERS Safety Report 15260620 (Version 1)
Quarter: 2018Q3

REPORT INFORMATION
  Report Type: Spontaneous
  Country: US (occurrence: US)
  Receive Date: 20180809
  Receipt Date: 20180809
  Transmission Date: 20181010
  Serious: Yes (Hospitalization)
  Sender: FDA-Public Use
  Company Number: US-BIOMARINAP-US-2018-119381

PATIENT
  Sex: Male
  Weight: 63.6 kg

DRUGS (1)
  1. VIMIZIM [Suspect]
     Active Substance: ELOSULFASE ALFA
     Indication: PRODUCT USED FOR UNKNOWN INDICATION
     Dosage: 125 MG, QW
     Route: 042
     Dates: start: 201711

REACTIONS (3)
  - Urinary tract infection [Unknown]
  - Respiratory tract infection [Recovering/Resolving]
  - Respiratory distress [Unknown]
